FAERS Safety Report 16965627 (Version 1)
Quarter: 2019Q4

REPORT INFORMATION
  Report Type: Spontaneous
  Country: US (occurrence: US)
  Receive Date: 20191028
  Receipt Date: 20191028
  Transmission Date: 20200122
  Serious: No
  Sender: FDA-Public Use
  Company Number: US-SCIEGEN PHARMACEUTICALS INC-2019SCISPO00280

PATIENT

DRUGS (1)
  1. GABAPENTIN. [Suspect]
     Active Substance: GABAPENTIN

REACTIONS (8)
  - Headache [Unknown]
  - Feeling jittery [Unknown]
  - Vision blurred [Unknown]
  - Withdrawal syndrome [Unknown]
  - Therapeutic reaction time decreased [None]
  - Therapeutic product effect decreased [None]
  - Hyperhidrosis [Unknown]
  - Dizziness [Unknown]
